FAERS Safety Report 16966407 (Version 1)
Quarter: 2019Q4

REPORT INFORMATION
  Report Type: Spontaneous
  Country: CA (occurrence: CA)
  Receive Date: 20191028
  Receipt Date: 20191028
  Transmission Date: 20200122
  Serious: Yes (Disabling)
  Sender: FDA-Public Use
  Company Number: CA-PFIZER INC-2019460864

PATIENT
  Age: 33 Year
  Sex: Female
  Weight: 78.91 kg

DRUGS (1)
  1. ALESSE 28 [Suspect]
     Active Substance: ETHINYL ESTRADIOL\LEVONORGESTREL
     Dosage: 1 DF, 1X/DAY
     Route: 048

REACTIONS (4)
  - Tooth abscess [Unknown]
  - Gingival bleeding [Unknown]
  - Gingival pain [Unknown]
  - Oral candidiasis [Unknown]
